FAERS Safety Report 4934790-6 (Version None)
Quarter: 2006Q1

REPORT INFORMATION
  Report Type: 
  Country: None (occurrence: None)
  Receive Date: 20060307
  Receipt Date: 20060217
  Transmission Date: 20060701
  Serious: Yes (Hospitalization)
  Sender: FDA-Public Use
  Company Number: FR-JNJFOC-20060204309

PATIENT
  Age: 84 Year
  Sex: Female

DRUGS (16)
  1. DURAGESIC-100 [Suspect]
     Route: 062
  2. ZOCOR [Concomitant]
     Route: 065
  3. SEROPRAM [Concomitant]
     Route: 065
  4. TAREG [Concomitant]
     Route: 065
  5. OMEPRAZOLE [Concomitant]
     Route: 065
  6. DIFRAREL [Concomitant]
     Route: 065
  7. DIFRAREL [Concomitant]
     Route: 065
  8. ATARAX [Concomitant]
     Route: 065
  9. IMOVANE [Concomitant]
     Route: 065
  10. ZANIDIP [Concomitant]
     Route: 065
  11. DAFALGAN [Concomitant]
     Route: 065
  12. MIXTARD HUMAN 70/30 [Concomitant]
     Route: 065
  13. MIXTARD HUMAN 70/30 [Concomitant]
     Route: 065
  14. INSULATARD NPH HUMAN [Concomitant]
     Route: 065
  15. CALCIPARINE [Concomitant]
     Route: 065
  16. DIGOXIN [Concomitant]
     Route: 065

REACTIONS (7)
  - AGGRESSION [None]
  - AGITATION [None]
  - DELUSION [None]
  - HALLUCINATION, AUDITORY [None]
  - HALLUCINATION, VISUAL [None]
  - SOMNOLENCE [None]
  - VASCULAR DEMENTIA [None]
